FAERS Safety Report 4680054-8 (Version None)
Quarter: 2005Q2

REPORT INFORMATION
  Report Type: 
  Country: None (occurrence: None)
  Receive Date: 20050525
  Receipt Date: 20050422
  Transmission Date: 20051028
  Serious: No
  Sender: FDA-Public Use
  Company Number: SU-2005-003472

PATIENT
  Age: 75 Year
  Sex: Female

DRUGS (5)
  1. BENICAR [Suspect]
     Dosage: 40 MG QD PO
     Route: 048
  2. BENICAR [Suspect]
     Dosage: 20 MG BID PO
     Route: 048
  3. UNSPECIFIED ACE [Concomitant]
  4. UNSPECIFIED DIURETIC [Concomitant]
  5. UNSPECIFIED CALCIUM CHANNEL BLOCKER [Concomitant]

REACTIONS (1)
  - FATIGUE [None]
